FAERS Safety Report 8815625 (Version 4)
Quarter: 2018Q1

REPORT INFORMATION
  Report Type: Spontaneous
  Country: US (occurrence: US)
  Receive Date: 20120928
  Receipt Date: 20180105
  Transmission Date: 20180509
  Serious: Yes (Hospitalization, Disabling, Other)
  Sender: FDA-Public Use
  Company Number: US-009507513-1209USA009481

PATIENT
  Sex: Female
  Weight: 53.06 kg

DRUGS (3)
  1. FOSAMAX [Suspect]
     Active Substance: ALENDRONATE SODIUM
     Indication: OSTEOPOROSIS
     Dosage: 70 MG, QW
     Route: 048
     Dates: end: 2010
  2. ALENDRONATE SODIUM. [Suspect]
     Active Substance: ALENDRONATE SODIUM
     Indication: OSTEOPOROSIS
     Dosage: 70 MG, QW
     Route: 048
     Dates: end: 2010
  3. ALENDRONATE SODIUM. [Suspect]
     Active Substance: ALENDRONATE SODIUM
     Indication: OSTEOPOROSIS
     Dosage: UNK
     Route: 048
     Dates: end: 2010

REACTIONS (18)
  - Femur fracture [Not Recovered/Not Resolved]
  - Ulcer [Unknown]
  - Thoracic vertebral fracture [Unknown]
  - Osteopenia [Unknown]
  - Anaemia postoperative [Recovered/Resolved]
  - Osteoarthritis [Unknown]
  - Open reduction of fracture [Unknown]
  - Bone disorder [Not Recovered/Not Resolved]
  - Spinal compression fracture [Unknown]
  - Intervertebral disc disorder [Unknown]
  - Persistent depressive disorder [Unknown]
  - Gastrooesophageal reflux disease [Unknown]
  - Transient ischaemic attack [Unknown]
  - Hyperlipidaemia [Unknown]
  - Hip arthroplasty [Unknown]
  - Lumbar vertebral fracture [Unknown]
  - Hypertension [Unknown]
  - Hypothyroidism [Unknown]

NARRATIVE: CASE EVENT DATE: 19980618
